FAERS Safety Report 4983337-7 (Version None)
Quarter: 2006Q2

REPORT INFORMATION
  Report Type: 
  Country: None (occurrence: None)
  Receive Date: 20060426
  Receipt Date: 20051020
  Transmission Date: 20061013
  Serious: Yes (Hospitalization)
  Sender: FDA-Public Use
  Company Number: US-MERCK-0510USA08415

PATIENT
  Age: 75 Year
  Sex: Female
  Weight: 73 kg

DRUGS (7)
  1. VIOXX [Suspect]
     Indication: OSTEOARTHRITIS
     Route: 048
     Dates: start: 20001205, end: 20040724
  2. VIOXX [Suspect]
     Indication: ARTHRITIS
     Route: 048
     Dates: start: 20001205, end: 20040724
  3. AVAPRO [Concomitant]
     Route: 065
  4. DYAZIDE [Concomitant]
     Route: 065
  5. PREMPRO [Concomitant]
     Route: 065
  6. PREVACID [Concomitant]
     Route: 065
  7. CALCIUM (UNSPECIFIED) [Concomitant]
     Route: 065

REACTIONS (15)
  - ACUTE MYOCARDIAL INFARCTION [None]
  - AUTOIMMUNE DISORDER [None]
  - CORONARY ARTERY OCCLUSION [None]
  - DIVERTICULUM [None]
  - GASTROOESOPHAGEAL REFLUX DISEASE [None]
  - HAEMATURIA [None]
  - HIATUS HERNIA [None]
  - OEDEMA PERIPHERAL [None]
  - PHARYNGOESOPHAGEAL DIVERTICULUM [None]
  - SALIVARY GLAND MASS [None]
  - SENSATION OF FOREIGN BODY [None]
  - SIALOADENITIS [None]
  - SPINAL COMPRESSION FRACTURE [None]
  - SUBMANDIBULAR MASS [None]
  - SYSTEMIC LUPUS ERYTHEMATOSUS RASH [None]
